FAERS Safety Report 20188781 (Version 3)
Quarter: 2024Q2

REPORT INFORMATION
  Report Type: Spontaneous
  Country: US (occurrence: US)
  Receive Date: 20211215
  Receipt Date: 20240625
  Transmission Date: 20240716
  Serious: No
  Sender: FDA-Public Use
  Company Number: US-SA-SAC20211209000943

PATIENT
  Age: 76 Year
  Sex: Female

DRUGS (1)
  1. DUPIXENT [Suspect]
     Active Substance: DUPILUMAB
     Indication: Asthma
     Dosage: 300 MG, Q2W
     Route: 058
     Dates: start: 20211021

REACTIONS (2)
  - Product use issue [Unknown]
  - Injection site discharge [Recovering/Resolving]

NARRATIVE: CASE EVENT DATE: 20211021
